FAERS Safety Report 20321168 (Version 1)
Quarter: 2022Q1

REPORT INFORMATION
  Report Type: Spontaneous
  Country: LT (occurrence: LT)
  Receive Date: 20220111
  Receipt Date: 20220111
  Transmission Date: 20220423
  Serious: Yes (Other)
  Sender: FDA-Public Use
  Company Number: LT-009507513-2111LTU007496

PATIENT
  Age: 74 Year
  Sex: Male

DRUGS (30)
  1. PEMETREXED [Suspect]
     Active Substance: PEMETREXED
     Indication: Product used for unknown indication
     Dosage: 1 COURSE
     Route: 065
     Dates: start: 202101
  2. PEMETREXED [Suspect]
     Active Substance: PEMETREXED
     Dosage: 2 COURSE
     Route: 065
     Dates: start: 2021
  3. PEMETREXED [Suspect]
     Active Substance: PEMETREXED
     Dosage: 3 COURSE
     Route: 065
     Dates: start: 2021
  4. PEMETREXED [Suspect]
     Active Substance: PEMETREXED
     Dosage: 4 COURSE
     Route: 065
     Dates: start: 2021
  5. PEMETREXED [Suspect]
     Active Substance: PEMETREXED
     Dosage: 5 COURSE
     Route: 065
     Dates: start: 2021
  6. PEMETREXED [Suspect]
     Active Substance: PEMETREXED
     Dosage: 6 COURSE
     Route: 065
     Dates: start: 2021
  7. PEMETREXED [Suspect]
     Active Substance: PEMETREXED
     Dosage: 7 COURSE
     Route: 065
     Dates: start: 2021
  8. PEMETREXED [Suspect]
     Active Substance: PEMETREXED
     Dosage: 8 COURSE
     Route: 065
     Dates: start: 2021
  9. PEMETREXED [Suspect]
     Active Substance: PEMETREXED
     Dosage: 9 COURSE
     Route: 065
     Dates: start: 2021
  10. PEMETREXED [Suspect]
     Active Substance: PEMETREXED
     Dosage: 10 COURSE
     Route: 065
     Dates: start: 20210929
  11. CARBOPLATIN [Suspect]
     Active Substance: CARBOPLATIN
     Indication: Product used for unknown indication
     Dosage: 1 COURSE
     Route: 065
     Dates: start: 202101
  12. CARBOPLATIN [Suspect]
     Active Substance: CARBOPLATIN
     Dosage: 2 COURSE
     Route: 065
     Dates: start: 2021
  13. CARBOPLATIN [Suspect]
     Active Substance: CARBOPLATIN
     Dosage: 3 COURSE
     Route: 065
     Dates: start: 2021
  14. CARBOPLATIN [Suspect]
     Active Substance: CARBOPLATIN
     Dosage: 4 COURSE
     Route: 065
     Dates: start: 2021
  15. CARBOPLATIN [Suspect]
     Active Substance: CARBOPLATIN
     Dosage: 5 COURSE
     Route: 065
     Dates: start: 202101
  16. CARBOPLATIN [Suspect]
     Active Substance: CARBOPLATIN
     Dosage: 6 COURSE
     Route: 065
     Dates: start: 2021
  17. CARBOPLATIN [Suspect]
     Active Substance: CARBOPLATIN
     Dosage: 7 COURSE
     Route: 065
     Dates: start: 2021
  18. CARBOPLATIN [Suspect]
     Active Substance: CARBOPLATIN
     Dosage: 8 COURSE
     Route: 065
     Dates: start: 2021
  19. CARBOPLATIN [Suspect]
     Active Substance: CARBOPLATIN
     Dosage: 9 COURSE
     Route: 065
     Dates: start: 2021
  20. CARBOPLATIN [Suspect]
     Active Substance: CARBOPLATIN
     Dosage: 10 COURSE
     Route: 065
     Dates: start: 20210929
  21. PEMBROLIZUMAB [Suspect]
     Active Substance: PEMBROLIZUMAB
     Indication: Product used for unknown indication
     Dosage: 1 COURSE
     Route: 065
     Dates: start: 202101
  22. PEMBROLIZUMAB [Suspect]
     Active Substance: PEMBROLIZUMAB
     Dosage: 2 COURSE
     Route: 065
     Dates: start: 2021
  23. PEMBROLIZUMAB [Suspect]
     Active Substance: PEMBROLIZUMAB
     Dosage: 3 COURSE
     Route: 065
     Dates: start: 2021
  24. PEMBROLIZUMAB [Suspect]
     Active Substance: PEMBROLIZUMAB
     Dosage: 4 COURSE
     Route: 065
     Dates: start: 2021
  25. PEMBROLIZUMAB [Suspect]
     Active Substance: PEMBROLIZUMAB
     Dosage: 5 COURSE
     Route: 065
     Dates: start: 2021
  26. PEMBROLIZUMAB [Suspect]
     Active Substance: PEMBROLIZUMAB
     Dosage: 6 COURSE
     Route: 065
     Dates: start: 2021
  27. PEMBROLIZUMAB [Suspect]
     Active Substance: PEMBROLIZUMAB
     Dosage: 7 COURSE
     Route: 065
     Dates: start: 2021
  28. PEMBROLIZUMAB [Suspect]
     Active Substance: PEMBROLIZUMAB
     Dosage: 8 COURSE
     Route: 065
     Dates: start: 2021
  29. PEMBROLIZUMAB [Suspect]
     Active Substance: PEMBROLIZUMAB
     Dosage: 9 COURSE
     Route: 065
     Dates: start: 2021
  30. PEMBROLIZUMAB [Suspect]
     Active Substance: PEMBROLIZUMAB
     Dosage: 10 COURSE
     Route: 065
     Dates: start: 20210929

REACTIONS (17)
  - C-reactive protein abnormal [Unknown]
  - Peripheral swelling [Recovering/Resolving]
  - Platelet count abnormal [Unknown]
  - Toxicity to various agents [Unknown]
  - Neutropenia [Unknown]
  - Anaemia [Unknown]
  - Back pain [Unknown]
  - Pain in extremity [Recovering/Resolving]
  - Rash erythematous [Recovered/Resolved]
  - Oedema [Unknown]
  - Pyrexia [Unknown]
  - Dyspnoea [Unknown]
  - Decreased appetite [Unknown]
  - Asthenia [Unknown]
  - Fatigue [Unknown]
  - Constipation [Unknown]
  - Nausea [Unknown]

NARRATIVE: CASE EVENT DATE: 20210101
